FAERS Safety Report 6389073-7 (Version None)
Quarter: 2009Q4

REPORT INFORMATION
  Report Type: 
  Country: None (occurrence: None)
  Receive Date: 20091006
  Receipt Date: 20090917
  Transmission Date: 20100525
  Serious: Yes (Other)
  Sender: FDA-Public Use
  Company Number: CHPA2009US18876

PATIENT
  Age: 65 Year
  Sex: Male
  Weight: 88.435 kg

DRUGS (2)
  1. EX-LAX REG STR CHOCOLATED LAX PCS SEN (NCH) [Suspect]
     Indication: LAXATIVE SUPPORTIVE CARE
     Dosage: 4 DF, UNK
     Route: 048
     Dates: start: 20080101, end: 20090901
  2. EX-LAX REG STR CHOCOLATED LAX PCS SEN (NCH) [Suspect]
     Dosage: 1 DF, QD
     Dates: start: 20090901, end: 20090901

REACTIONS (1)
  - DRUG DEPENDENCE [None]
